FAERS Safety Report 23758051 (Version 1)
Quarter: 2024Q2

REPORT INFORMATION
  Report Type: Spontaneous
  Country: FR (occurrence: FR)
  Receive Date: 20240418
  Receipt Date: 20240418
  Transmission Date: 20240716
  Serious: Yes (Hospitalization)
  Sender: FDA-Public Use
  Company Number: None

PATIENT
  Age: 51 Year
  Sex: Female
  Weight: 83.9 kg

DRUGS (2)
  1. VALACYCLOVIR HYDROCHLORIDE [Suspect]
     Active Substance: VALACYCLOVIR HYDROCHLORIDE
     Indication: Herpes zoster
     Dosage: 1000 MILLIGRAM, Q8H, (500 MG 2-2-2)
     Route: 048
     Dates: start: 20240312, end: 20240319
  2. LEVONORGESTREL [Concomitant]
     Active Substance: LEVONORGESTREL
     Indication: Intrauterine contraception
     Dosage: UNK
     Route: 015

REACTIONS (1)
  - Pancreatitis acute [Recovered/Resolved]

NARRATIVE: CASE EVENT DATE: 20240320
